FAERS Safety Report 18048043 (Version 1)
Quarter: 2020Q3

REPORT INFORMATION
  Report Type: Spontaneous
  Country: US (occurrence: US)
  Receive Date: 20200719
  Receipt Date: 20200719
  Transmission Date: 20201103
  Serious: No
  Sender: FDA-Public Use
  Company Number: None

PATIENT
  Sex: Female

DRUGS (1)
  1. C 4 U HAND SANITIZER ? ALCOHOL ANTISEPTIC 80% ? TOPICAL SOLUTION [Suspect]
     Active Substance: ALCOHOL
     Indication: INFECTION PROPHYLAXIS
     Dosage: ?          QUANTITY:946 ML;?
     Route: 061
     Dates: start: 20200515, end: 20200719

REACTIONS (4)
  - Product formulation issue [None]
  - Headache [None]
  - Product odour abnormal [None]
  - Blood methanol [None]

NARRATIVE: CASE EVENT DATE: 20200719
